FAERS Safety Report 24574803 (Version 1)
Quarter: 2024Q4

REPORT INFORMATION
  Report Type: Spontaneous
  Country: BR (occurrence: BR)
  Receive Date: 20241104
  Receipt Date: 20241104
  Transmission Date: 20250114
  Serious: No
  Sender: UCB
  Company Number: BR-UCBSA-2024057174

PATIENT
  Sex: Female

DRUGS (8)
  1. NEUPRO [Suspect]
     Active Substance: ROTIGOTINE
     Indication: Parkinson^s disease
     Dosage: 4 MILLIGRAM, ONCE DAILY (QD)
     Route: 062
     Dates: start: 2024
  2. ARTEMETHER [Concomitant]
     Active Substance: ARTEMETHER
     Indication: Parkinson^s disease
     Dosage: 1 TABLET IN THE MORNING
     Dates: start: 2024
  3. XADAGO [Concomitant]
     Active Substance: SAFINAMIDE MESYLATE
     Indication: Parkinson^s disease
     Dosage: 1 TABLET IN THE MORNING
     Dates: start: 2024
  4. BENSERAZIDE\LEVODOPA [Concomitant]
     Active Substance: BENSERAZIDE\LEVODOPA
     Indication: Parkinson^s disease
     Dosage: BD: USE 1 AND A HALF TABLETS, FOUR TIMES A DAY
     Dates: start: 2022
  5. PRAMIPEXOLE [Concomitant]
     Active Substance: PRAMIPEXOLE\PRAMIPEXOLE DIHYDROCHLORIDE
     Indication: Parkinson^s disease
     Dosage: 0.5 MG: USE HALF A TABLET AT NIGHT
     Dates: start: 2020
  6. BENSERAZIDE\LEVODOPA [Concomitant]
     Active Substance: BENSERAZIDE\LEVODOPA
     Indication: Parkinson^s disease
     Dosage: USE 1 TABLET AT NIGHT
     Dates: start: 2022
  7. ELECTROLYTES NOS\POLYETHYLENE GLYCOL 3350 [Concomitant]
     Active Substance: ELECTROLYTES NOS\POLYETHYLENE GLYCOL 3350
     Indication: Abdominal discomfort
     Dosage: USES 1 ENVELOPE A DAY
     Dates: start: 2022
  8. COLACT [Concomitant]
     Indication: Abdominal discomfort
     Dosage: 10 ML A DAY, AS NEEDED
     Dates: start: 2023

REACTIONS (1)
  - Product adhesion issue [Unknown]

NARRATIVE: CASE EVENT DATE: 20240101
